FAERS Safety Report 5154571-0 (Version None)
Quarter: 2006Q4

REPORT INFORMATION
  Report Type: 
  Country: None (occurrence: None)
  Receive Date: 20061114
  Receipt Date: 20061027
  Transmission Date: 20070319
  Serious: Yes (Other)
  Sender: FDA-Public Use
  Company Number: 2006BM000169

PATIENT
  Age: 55 Year
  Sex: Male

DRUGS (3)
  1. PREDNISOLONE [Suspect]
     Indication: IMMUNOSUPPRESSION
     Dosage: 10 MG;QD
  2. ORAPRED [Suspect]
  3. CYCLOSPORINE [Concomitant]

REACTIONS (2)
  - CHORIORETINOPATHY [None]
  - RETINAL PIGMENT EPITHELIOPATHY [None]
